FAERS Safety Report 8951032 (Version 2)
Quarter: 2012Q4

REPORT INFORMATION
  Report Type: 
  Country: JP (occurrence: JP)
  Receive Date: 20121207
  Receipt Date: 20121217
  Transmission Date: 20130627
  Serious: Yes (Other)
  Sender: FDA-Public Use
  Company Number: JP-PFIZER INC-2012306751

PATIENT
  Age: 77 Year
  Sex: Male

DRUGS (1)
  1. JZOLOFT [Suspect]
     Dosage: 100 mg/day
     Route: 048

REACTIONS (1)
  - Pneumonia aspiration [Unknown]
